FAERS Safety Report 16353847 (Version 1)
Quarter: 2019Q2

REPORT INFORMATION
  Report Type: Spontaneous
  Country: ES (occurrence: ES)
  Receive Date: 20190524
  Receipt Date: 20190524
  Transmission Date: 20190711
  Serious: Yes (Hospitalization)
  Sender: FDA-Public Use
  Company Number: ES-JNJFOC-20190526375

PATIENT
  Age: 43 Year
  Sex: Female

DRUGS (2)
  1. STELARA [Suspect]
     Active Substance: USTEKINUMAB
     Indication: PSORIASIS
     Route: 059
     Dates: start: 20181005, end: 20190201
  2. SIBILLA [Concomitant]
     Active Substance: DIENOGEST\ETHINYL ESTRADIOL
     Route: 065

REACTIONS (3)
  - Incorrect route of product administration [Unknown]
  - Lymph node tuberculosis [Recovering/Resolving]
  - Off label use [Unknown]

NARRATIVE: CASE EVENT DATE: 20181005
